FAERS Safety Report 6401269-4 (Version None)
Quarter: 2009Q4

REPORT INFORMATION
  Report Type: 
  Country: None (occurrence: None)
  Receive Date: 20091009
  Receipt Date: 20091009
  Transmission Date: 20100525
  Serious: No
  Sender: FDA-Public Use
  Company Number: None

PATIENT
  Age: 4 Year
  Sex: Female
  Weight: 16 kg

DRUGS (3)
  1. DEPAKENE [Suspect]
     Indication: CONVULSION
     Dosage: 150 MG TWICE/ DAY PO
     Route: 048
     Dates: start: 20090301, end: 20091008
  2. KEPPRA [Suspect]
     Indication: CONVULSION
     Dosage: 125 MG TWICE/ DAY PO
     Route: 048
     Dates: start: 20090712, end: 20091008
  3. COLCHICINE [Concomitant]

REACTIONS (4)
  - HYPOAESTHESIA [None]
  - MUSCULAR WEAKNESS [None]
  - SPEECH DISORDER [None]
  - TREMOR [None]
